FAERS Safety Report 24388887 (Version 2)
Quarter: 2024Q4

REPORT INFORMATION
  Report Type: Spontaneous
  Country: JP (occurrence: JP)
  Receive Date: 20241002
  Receipt Date: 20241011
  Transmission Date: 20250115
  Serious: Yes (Other)
  Sender: BAUSCH AND LOMB
  Company Number: JP-BAUSCHBL-2024BNL034370

PATIENT
  Age: 46 Year
  Sex: Male

DRUGS (2)
  1. BEPOTASTINE [Suspect]
     Active Substance: BEPOTASTINE
     Indication: Liver disorder
     Route: 065
  2. BEPOTASTINE [Suspect]
     Active Substance: BEPOTASTINE
     Indication: Pulmonary artery thrombosis

REACTIONS (1)
  - Drug hypersensitivity [Unknown]
